FAERS Safety Report 24424885 (Version 1)
Quarter: 2024Q4

REPORT INFORMATION
  Report Type: Spontaneous
  Country: GB (occurrence: GB)
  Receive Date: 20241010
  Receipt Date: 20241010
  Transmission Date: 20250114
  Serious: Yes (Other)
  Sender: DR REDDYS
  Company Number: None

PATIENT
  Age: 30 Year
  Sex: Male
  Weight: 89 kg

DRUGS (1)
  1. SUMATRIPTAN [Suspect]
     Active Substance: SUMATRIPTAN
     Indication: Migraine
     Dosage: 50 MCG AS RECEIVED FOR PAIN
     Dates: start: 20230101, end: 20240930

REACTIONS (4)
  - Chest pain [Not Recovered/Not Resolved]
  - Chest X-ray [Unknown]
  - Thrombosis [Not Recovered/Not Resolved]
  - Computerised tomogram thorax [Unknown]

NARRATIVE: CASE EVENT DATE: 20240926
